FAERS Safety Report 16045763 (Version 1)
Quarter: 2019Q1

REPORT INFORMATION
  Report Type: Spontaneous
  Country: US (occurrence: US)
  Receive Date: 20190307
  Receipt Date: 20190307
  Transmission Date: 20190418
  Serious: No
  Sender: FDA-Public Use
  Company Number: US-GLAXOSMITHKLINE-US2019GSK039745

PATIENT

DRUGS (1)
  1. LAMOTRIGINE. [Suspect]
     Active Substance: LAMOTRIGINE
     Indication: PRODUCT USED FOR UNKNOWN INDICATION
     Dosage: UNK

REACTIONS (6)
  - Swollen tongue [Unknown]
  - Oral mucosal blistering [Unknown]
  - Drug hypersensitivity [Unknown]
  - Oral pain [Unknown]
  - Dysphagia [Unknown]
  - Tongue blistering [Unknown]
